FAERS Safety Report 25904424 (Version 1)
Quarter: 2025Q4

REPORT INFORMATION
  Report Type: Spontaneous
  Country: US (occurrence: US)
  Receive Date: 20251010
  Receipt Date: 20251010
  Transmission Date: 20260117
  Serious: No
  Sender: SANOFI AVENTIS
  Company Number: US-SA-2025SA297201

PATIENT
  Age: 4 Year
  Sex: Female

DRUGS (5)
  1. DUPIXENT [Suspect]
     Active Substance: DUPILUMAB
     Indication: Rash
     Dosage: 300 MG, Q4W
     Route: 058
     Dates: start: 20250828
  2. DUPIXENT [Suspect]
     Active Substance: DUPILUMAB
     Indication: Skin swelling
  3. DUPIXENT [Suspect]
     Active Substance: DUPILUMAB
     Indication: Skin ulcer
  4. DUPIXENT [Suspect]
     Active Substance: DUPILUMAB
     Indication: Dermatitis acneiform
  5. DUPIXENT [Suspect]
     Active Substance: DUPILUMAB
     Indication: Pruritus

REACTIONS (1)
  - Product use in unapproved indication [Unknown]

NARRATIVE: CASE EVENT DATE: 20250828
